FAERS Safety Report 10042082 (Version 1)
Quarter: 2014Q1

REPORT INFORMATION
  Report Type: Spontaneous
  Country: US (occurrence: US)
  Receive Date: 20140327
  Receipt Date: 20140327
  Transmission Date: 20141002
  Serious: Yes (Death, Other)
  Sender: FDA-Public Use
  Company Number: US-FRI-1000065774

PATIENT
  Age: 56 Year
  Sex: Male

DRUGS (1)
  1. BYSTOLIC [Suspect]
     Indication: HYPERTENSION
     Dosage: 5 MG
     Dates: start: 20110502

REACTIONS (1)
  - Malignant melanoma [Fatal]
